FAERS Safety Report 14026233 (Version 2)
Quarter: 2017Q4

REPORT INFORMATION
  Report Type: Report from Study
  Country: US (occurrence: US)
  Receive Date: 20170929
  Receipt Date: 20171103
  Transmission Date: 20180321
  Serious: Yes (Other)
  Sender: FDA-Public Use
  Company Number: US-BIOGEN-2017BI00463573

PATIENT
  Sex: Male

DRUGS (1)
  1. ZINBRYTA [Suspect]
     Active Substance: DACLIZUMAB
     Indication: MULTIPLE SCLEROSIS
     Route: 058
     Dates: start: 20170421, end: 20170718

REACTIONS (5)
  - Lethargy [Unknown]
  - Nausea [Unknown]
  - Abdominal pain [Unknown]
  - Jaundice [Unknown]
  - Liver function test increased [Not Recovered/Not Resolved]
